FAERS Safety Report 21469462 (Version 2)
Quarter: 2023Q1

REPORT INFORMATION
  Report Type: Spontaneous
  Country: US (occurrence: US)
  Receive Date: 20221018
  Receipt Date: 20230322
  Transmission Date: 20230418
  Serious: Yes (Hospitalization)
  Sender: FDA-Public Use
  Company Number: US-UNITED THERAPEUTICS-UNT-2022-021713

PATIENT
  Age: 81 Year
  Sex: Male

DRUGS (9)
  1. TYVASO [Suspect]
     Active Substance: TREPROSTINIL
     Indication: Pulmonary arterial hypertension
     Dosage: UNK
     Dates: start: 20220907
  2. TYVASO [Suspect]
     Active Substance: TREPROSTINIL
     Dosage: 18 ?G, QID
     Dates: start: 20220907, end: 20220913
  3. TYVASO [Suspect]
     Active Substance: TREPROSTINIL
     Dosage: 18 ?G, QID (RESTARTED)
     Dates: start: 20221011
  4. VIAGRA [Concomitant]
     Active Substance: SILDENAFIL CITRATE
     Indication: Pulmonary arterial hypertension
     Dosage: 20 MG, TID
     Route: 065
     Dates: start: 2022, end: 202209
  5. NINLARO [Concomitant]
     Active Substance: IXAZOMIB CITRATE
     Indication: Plasma cell myeloma
     Dosage: 3 MG (3 FRIDAYS IN 1 MONTH)
     Route: 065
     Dates: start: 2022, end: 202209
  6. NINLARO [Concomitant]
     Active Substance: IXAZOMIB CITRATE
     Dosage: 3 MG ( 3FRIDAYS IN 1MONTH) (RESTARTED)
     Route: 065
     Dates: start: 20221104
  7. DEXAMETHASONE [Concomitant]
     Active Substance: DEXAMETHASONE
     Indication: Plasma cell myeloma
     Dosage: 20 MG ( 3 FRIDAYS IN 1 MONTH)
     Route: 065
     Dates: start: 2022, end: 202209
  8. DEXAMETHASONE [Concomitant]
     Active Substance: DEXAMETHASONE
     Dosage: 10 MG  ( 3 FRIDAYS IN 1 MONTH) (RESTARTED)
     Route: 065
     Dates: start: 20221104
  9. REVLIMID [Concomitant]
     Active Substance: LENALIDOMIDE
     Indication: Plasma cell myeloma
     Dosage: 15 MG, QD
     Route: 065
     Dates: start: 2022, end: 202209

REACTIONS (2)
  - Rash [Recovered/Resolved]
  - Blister [Unknown]

NARRATIVE: CASE EVENT DATE: 20220913
